FAERS Safety Report 24782944 (Version 1)
Quarter: 2024Q4

REPORT INFORMATION
  Report Type: Spontaneous
  Country: US (occurrence: US)
  Receive Date: 20241227
  Receipt Date: 20241227
  Transmission Date: 20250114
  Serious: Yes (Death)
  Sender: AMGEN
  Company Number: US-AMGEN-USASP2024252026

PATIENT

DRUGS (2)
  1. PREDNISONE [Suspect]
     Active Substance: PREDNISONE
     Indication: Vasculitis
     Dosage: 1 MILLIGRAM/KILOGRAM, QD
     Route: 048
  2. PREDNISONE [Suspect]
     Active Substance: PREDNISONE
     Indication: Myopathy
     Dosage: UNK (TAPER AFTER ONE OR TWO MONTHS)
     Route: 048

REACTIONS (1)
  - Death [Fatal]
